FAERS Safety Report 11272634 (Version 1)
Quarter: 2015Q2

REPORT INFORMATION
  Report Type: Spontaneous
  Country: US (occurrence: None)
  Receive Date: 20150625
  Receipt Date: 20150625
  Transmission Date: 20150821
  Serious: No
  Sender: FDA-Public Use
  Company Number: A-US2015-115733

PATIENT
  Age: 72 Year
  Sex: Female

DRUGS (1)
  1. OPSUMIT [Suspect]
     Active Substance: MACITENTAN
     Indication: PULMONARY HYPERTENSION
     Route: 048
     Dates: start: 20150326

REACTIONS (6)
  - Headache [None]
  - Arthralgia [None]
  - Pain [None]
  - Influenza like illness [None]
  - Peripheral swelling [None]
  - Nasal congestion [None]

NARRATIVE: CASE EVENT DATE: 20150329
